FAERS Safety Report 9719215 (Version 5)
Quarter: 2014Q1

REPORT INFORMATION
  Report Type: Spontaneous
  Country: US (occurrence: US)
  Receive Date: 20131127
  Receipt Date: 20140121
  Transmission Date: 20141002
  Serious: Yes (Hospitalization, Other)
  Sender: FDA-Public Use
  Company Number: PHEH2013US024332

PATIENT
  Sex: Female
  Weight: 43 kg

DRUGS (6)
  1. TEGRETOL [Suspect]
     Indication: GRAND MAL CONVULSION
     Dosage: UNK UKN, UNK
     Dates: start: 1980
  2. TEGRETOL [Suspect]
     Indication: GRAND MAL CONVULSION
     Dosage: 2 DF, BID (2 TABLETS IN THE MORNING AND 2 TABLETS AT NIGHT)
     Route: 048
     Dates: start: 1980
  3. EQUETRO [Suspect]
     Dosage: UNK UKN, UNK
  4. LAMOTRIGINE [Concomitant]
     Indication: CONVULSION
     Dosage: 5.5 DF,DAILY (2.5 DF IN THE MORNING AND 3 DF IN THE EVENING)
  5. LAMOX [Concomitant]
     Dosage: UNK UKN, UNK
  6. MULTIVIT//VITAMINS NOS [Concomitant]
     Dosage: UNK UKN, UNK

REACTIONS (5)
  - Diarrhoea [Not Recovered/Not Resolved]
  - Coeliac disease [Unknown]
  - Weight decreased [Unknown]
  - Convulsion [Unknown]
  - Stress [Unknown]
